FAERS Safety Report 5420931-3 (Version None)
Quarter: 2007Q3

REPORT INFORMATION
  Report Type: 
  Country: None (occurrence: None)
  Receive Date: 20070817
  Receipt Date: 20070817
  Transmission Date: 20080115
  Serious: Yes (Hospitalization)
  Sender: FDA-Public Use
  Company Number: None

PATIENT
  Age: 87 Year
  Sex: Female
  Weight: 64.4108 kg

DRUGS (1)
  1. EXELON [Suspect]
     Indication: DEMENTIA ALZHEIMER'S TYPE
     Dosage: 1 CAPSULE 2 X A DAY PO
     Route: 048
     Dates: start: 20070808, end: 20070814

REACTIONS (3)
  - ASTHENIA [None]
  - FEAR OF DEATH [None]
  - TREMOR [None]
